FAERS Safety Report 4337091-2 (Version None)
Quarter: 2004Q1

REPORT INFORMATION
  Report Type: 
  Country: None (occurrence: None)
  Receive Date: 20040329
  Receipt Date: 20031126
  Transmission Date: 20041129
  Serious: No
  Sender: FDA-Public Use
  Company Number: USA031153492

PATIENT
  Age: 13 Year
  Sex: Female
  Weight: 45 kg

DRUGS (1)
  1. STRATTERA [Suspect]
     Indication: ATTENTION DEFICIT/HYPERACTIVITY DISORDER
     Dosage: 40 MG/DAY
     Dates: start: 20031101

REACTIONS (8)
  - AGITATION [None]
  - DECREASED APPETITE [None]
  - DIZZINESS [None]
  - EYE PAIN [None]
  - HEADACHE [None]
  - MYDRIASIS [None]
  - NAUSEA [None]
  - SOMNOLENCE [None]
